FAERS Safety Report 25844476 (Version 1)
Quarter: 2025Q3

REPORT INFORMATION
  Report Type: Report from Study
  Country: EU (occurrence: EU)
  Receive Date: 20250925
  Receipt Date: 20250925
  Transmission Date: 20251021
  Serious: Yes (Hospitalization)
  Sender: ALEXION PHARMACEUTICALS
  Company Number: EU-ASTRAZENECA-202509GLO014429DE

PATIENT
  Age: 13 Year
  Sex: Female

DRUGS (14)
  1. SELUMETINIB [Suspect]
     Active Substance: SELUMETINIB
     Indication: Neurofibromatosis
     Dosage: 25 MILLIGRAM, BID
     Route: 065
     Dates: start: 20221002, end: 20230225
  2. SELUMETINIB [Suspect]
     Active Substance: SELUMETINIB
     Dosage: 30 MILLIGRAM, BID
     Route: 065
     Dates: start: 20230226, end: 20231008
  3. SELUMETINIB [Suspect]
     Active Substance: SELUMETINIB
     Dosage: 35 MILLIGRAM, BID
     Route: 065
     Dates: start: 20231009
  4. CEFPODOXIME [Concomitant]
     Active Substance: CEFPODOXIME
     Indication: Urinary tract infection
     Dosage: 200 MILLIGRAM, BID
     Dates: start: 20230512, end: 20230519
  5. DIMETHINDENE [Concomitant]
     Active Substance: DIMETHINDENE
     Indication: Pustule
     Dates: start: 20231010, end: 20240331
  6. DIMETHINDENE [Concomitant]
     Active Substance: DIMETHINDENE
     Indication: Pustule
     Dates: start: 20231010, end: 20240331
  7. BENZOYL PEROXIDE [Concomitant]
     Active Substance: BENZOYL PEROXIDE
     Indication: Pustule
     Dates: start: 20240118, end: 20250409
  8. BENZOYL PEROXIDE [Concomitant]
     Active Substance: BENZOYL PEROXIDE
     Indication: Prophylaxis
  9. Zinc ointment [Concomitant]
     Indication: Pustule
     Dates: start: 20240118, end: 20250409
  10. COTRIM [Concomitant]
     Active Substance: SULFAMETHOXAZOLE\TRIMETHOPRIM
     Indication: Urinary tract infection
     Dosage: 800 MILLIGRAM, BID
     Dates: start: 20240123, end: 20240127
  11. FOSFOMYCIN [Concomitant]
     Active Substance: FOSFOMYCIN
     Indication: Urinary tract infection
     Dosage: 3 GRAM, QD
     Dates: start: 20240410, end: 20240410
  12. DOXYCYCLINE [Concomitant]
     Active Substance: DOXYCYCLINE
     Indication: Cough
     Dates: start: 20240620, end: 20240627
  13. DOXYCYCLINE [Concomitant]
     Active Substance: DOXYCYCLINE
     Indication: Mycoplasma infection
  14. NYSTATIN [Concomitant]
     Active Substance: NYSTATIN
     Indication: Vulvovaginal mycotic infection

REACTIONS (1)
  - Mastitis [Recovered/Resolved]

NARRATIVE: CASE EVENT DATE: 20250517
